FAERS Safety Report 5723812-0 (Version None)
Quarter: 2008Q2

REPORT INFORMATION
  Report Type: 
  Country: None (occurrence: None)
  Receive Date: 20080430
  Receipt Date: 20080422
  Transmission Date: 20081010
  Serious: Yes (Hospitalization)
  Sender: FDA-Public Use
  Company Number: US-JNJFOC-20080206378

PATIENT
  Sex: Male
  Weight: 90.72 kg

DRUGS (6)
  1. RISPERDAL CONSTA [Suspect]
     Route: 030
  2. RISPERDAL CONSTA [Suspect]
     Route: 030
  3. RISPERDAL CONSTA [Suspect]
     Indication: POST-TRAUMATIC STRESS DISORDER
     Route: 030
  4. RISPERIDONE [Suspect]
     Indication: POST-TRAUMATIC STRESS DISORDER
     Route: 048
  5. ATIVAN [Concomitant]
     Indication: NERVOUSNESS
     Route: 048
  6. LEVOTHYROXINE SODIUM [Concomitant]
     Indication: THYROID DISORDER
     Route: 048

REACTIONS (20)
  - ABNORMAL DREAMS [None]
  - APPETITE DISORDER [None]
  - CHEST PAIN [None]
  - COORDINATION ABNORMAL [None]
  - DYSURIA [None]
  - EXCESSIVE MASTURBATION [None]
  - EXERCISE TOLERANCE DECREASED [None]
  - FEELING ABNORMAL [None]
  - HALLUCINATION [None]
  - HEARING IMPAIRED [None]
  - HYPERHIDROSIS [None]
  - INCORRECT ROUTE OF DRUG ADMINISTRATION [None]
  - INSOMNIA [None]
  - LUNG INFECTION [None]
  - MEMORY IMPAIRMENT [None]
  - MUSCULAR WEAKNESS [None]
  - ORCHITIS [None]
  - PAIN [None]
  - PULSE ABNORMAL [None]
  - RESPIRATION ABNORMAL [None]
